FAERS Safety Report 4688158-0 (Version None)
Quarter: 2005Q2

REPORT INFORMATION
  Report Type: 
  Country: None (occurrence: None)
  Receive Date: 20050609
  Receipt Date: 20050603
  Transmission Date: 20051028
  Serious: Yes (Death, Hospitalization, Other)
  Sender: FDA-Public Use
  Company Number: KII-2005-0016911

PATIENT
  Age: 3 Year
  Sex: Female

DRUGS (1)
  1. OXYCONTIN [Suspect]
     Dosage: ORAL
     Route: 048

REACTIONS (7)
  - ACCIDENTAL EXPOSURE [None]
  - BRAIN DEATH [None]
  - COMA [None]
  - HEART RATE INCREASED [None]
  - HYPOXIC ENCEPHALOPATHY [None]
  - PUPIL FIXED [None]
  - RESPIRATORY ARREST [None]
